FAERS Safety Report 24077078 (Version 2)
Quarter: 2025Q2

REPORT INFORMATION
  Report Type: Spontaneous
  Country: US (occurrence: US)
  Receive Date: 20240711
  Receipt Date: 20250605
  Transmission Date: 20250717
  Serious: No
  Sender: PIERRE FABRE MEDICAMENT
  Company Number: US-PFM-2023-05499

PATIENT
  Sex: Female
  Weight: 8.44 kg

DRUGS (3)
  1. HEMANGEOL [Suspect]
     Active Substance: PROPRANOLOL HYDROCHLORIDE
     Indication: Haemangioma
     Dosage: 1.8 ML, BID (2/DAY)
     Dates: start: 20230814
  2. HEMANGEOL [Suspect]
     Active Substance: PROPRANOLOL HYDROCHLORIDE
     Route: 065
  3. HEMANGEOL [Suspect]
     Active Substance: PROPRANOLOL HYDROCHLORIDE
     Dosage: 3.2 ML, BID (2/DAY)

REACTIONS (4)
  - Haemangioma [Unknown]
  - Condition aggravated [Unknown]
  - Illness [Unknown]
  - Constipation [Unknown]
